FAERS Safety Report 20745922 (Version 3)
Quarter: 2022Q2

REPORT INFORMATION
  Report Type: Report from Study
  Country: US (occurrence: US)
  Receive Date: 20220425
  Receipt Date: 20220614
  Transmission Date: 20220720
  Serious: Yes (Death, Life-Threatening, Hospitalization, Other)
  Sender: FDA-Public Use
  Company Number: US-GILEAD-2022-0578935

PATIENT
  Age: 62 Year
  Sex: Female

DRUGS (16)
  1. REMDESIVIR [Suspect]
     Active Substance: REMDESIVIR
     Indication: COVID-19
     Dosage: 100 MG, QD
     Route: 042
     Dates: start: 20211210, end: 20211213
  2. REMDESIVIR [Suspect]
     Active Substance: REMDESIVIR
     Dosage: 100 UNK
     Route: 042
     Dates: start: 20211214, end: 20211214
  3. ARFORMOTEROL [Concomitant]
     Active Substance: ARFORMOTEROL
  4. BARICITINIB [Concomitant]
     Active Substance: BARICITINIB
  5. BUDESONIDE [Concomitant]
     Active Substance: BUDESONIDE
  6. CISATRACURIUM [Concomitant]
     Active Substance: CISATRACURIUM
  7. DEXAMETHASONE [Concomitant]
     Active Substance: DEXAMETHASONE
  8. ENOXAPARIN [Concomitant]
     Active Substance: ENOXAPARIN
  9. HEPARIN [Concomitant]
     Active Substance: HEPARIN SODIUM
  10. MEROPENEM [Concomitant]
     Active Substance: MEROPENEM
  11. HYDRALAZINE [Concomitant]
     Active Substance: HYDRALAZINE HYDROCHLORIDE
  12. IPRATROPIUM [Concomitant]
     Active Substance: IPRATROPIUM
  13. LORAZEPAM [Concomitant]
     Active Substance: LORAZEPAM
  14. VECURONIUM [Concomitant]
     Active Substance: VECURONIUM BROMIDE
  15. OXYGEN [Concomitant]
     Active Substance: OXYGEN
  16. SODIUM BICARBONATE [Concomitant]
     Active Substance: SODIUM BICARBONATE

REACTIONS (2)
  - Cardiac arrest [Fatal]
  - Pneumothorax [Recovering/Resolving]

NARRATIVE: CASE EVENT DATE: 20211220
